FAERS Safety Report 17679091 (Version 2)
Quarter: 2021Q1

REPORT INFORMATION
  Report Type: Spontaneous
  Country: US (occurrence: US)
  Receive Date: 20200417
  Receipt Date: 20210203
  Transmission Date: 20210419
  Serious: Yes (Other)
  Sender: FDA-Public Use
  Company Number: US-ASTRAZENECA-2020SE50797

PATIENT
  Age: 23142 Day
  Sex: Female
  Weight: 78 kg

DRUGS (40)
  1. NORVASC [Concomitant]
     Active Substance: AMLODIPINE BESYLATE
  2. LACTULOSE. [Concomitant]
     Active Substance: LACTULOSE
  3. OXYCODONE [Concomitant]
     Active Substance: OXYCODONE
  4. PREGABALIN. [Concomitant]
     Active Substance: PREGABALIN
  5. ZOFRAN [Concomitant]
     Active Substance: ONDANSETRON HYDROCHLORIDE
  6. HYDROCHLOROTHIAZIDE. [Concomitant]
     Active Substance: HYDROCHLOROTHIAZIDE
  7. BISACODYL. [Concomitant]
     Active Substance: BISACODYL
  8. AMLODIPINE BESYLATE. [Concomitant]
     Active Substance: AMLODIPINE BESYLATE
  9. PRILOSEC [Suspect]
     Active Substance: OMEPRAZOLE MAGNESIUM
     Route: 048
     Dates: start: 200601, end: 201608
  10. PREVACID 24 HR [Suspect]
     Active Substance: LANSOPRAZOLE
     Route: 065
     Dates: start: 200601, end: 201608
  11. ALBUTEROL. [Concomitant]
     Active Substance: ALBUTEROL
  12. TRAZODONE [Concomitant]
     Active Substance: TRAZODONE HYDROCHLORIDE
  13. ZYRTEC [Concomitant]
     Active Substance: CETIRIZINE HYDROCHLORIDE
  14. BENZONATATE. [Concomitant]
     Active Substance: BENZONATATE
  15. PREVACID [Suspect]
     Active Substance: LANSOPRAZOLE
     Route: 065
     Dates: start: 200601, end: 201608
  16. AMBIEN [Concomitant]
     Active Substance: ZOLPIDEM TARTRATE
  17. ADVAIR DISKUS [Concomitant]
     Active Substance: FLUTICASONE PROPIONATE\SALMETEROL XINAFOATE
  18. BENADRYL [Concomitant]
     Active Substance: DIPHENHYDRAMINE HYDROCHLORIDE
  19. CLONIDINE. [Concomitant]
     Active Substance: CLONIDINE
  20. ESTRADIOL. [Concomitant]
     Active Substance: ESTRADIOL
  21. CLARITIN [Concomitant]
     Active Substance: LORATADINE
  22. PERCOCET [Concomitant]
     Active Substance: ACETAMINOPHEN\OXYCODONE HYDROCHLORIDE
  23. DOCUSATE SODIUM. [Concomitant]
     Active Substance: DOCUSATE SODIUM
  24. OXYCONTIN [Concomitant]
     Active Substance: OXYCODONE HYDROCHLORIDE
  25. CYCLOBENZAPRINE. [Concomitant]
     Active Substance: CYCLOBENZAPRINE
  26. XANAX [Concomitant]
     Active Substance: ALPRAZOLAM
  27. CALCIUM CARBONATE. [Concomitant]
     Active Substance: CALCIUM CARBONATE
  28. ESCITALOPRAM [Concomitant]
     Active Substance: ESCITALOPRAM OXALATE
  29. DIPHENHYDRAMINE. [Concomitant]
     Active Substance: DIPHENHYDRAMINE
  30. NEXIUM [Suspect]
     Active Substance: ESOMEPRAZOLE MAGNESIUM
     Route: 048
     Dates: start: 200601, end: 201608
  31. NEXIUM 24HR [Suspect]
     Active Substance: ESOMEPRAZOLE MAGNESIUM
     Route: 048
     Dates: start: 200601, end: 201608
  32. PROMETHAZINE [Concomitant]
     Active Substance: PROMETHAZINE HYDROCHLORIDE
  33. PRILOSEC OTC [Suspect]
     Active Substance: OMEPRAZOLE MAGNESIUM
     Route: 048
     Dates: start: 200601, end: 201608
  34. LEXAPRO [Concomitant]
     Active Substance: ESCITALOPRAM OXALATE
  35. GABAPENTIN. [Concomitant]
     Active Substance: GABAPENTIN
  36. CALCIUM [Concomitant]
     Active Substance: CALCIUM
  37. FLEXERIL [Concomitant]
     Active Substance: CYCLOBENZAPRINE HYDROCHLORIDE
  38. VITAMIN D [Concomitant]
     Active Substance: VITAMIN D NOS
  39. MOMETASONE FUROATE. [Concomitant]
     Active Substance: MOMETASONE FUROATE
  40. PANTOPRAZOLE [Concomitant]
     Active Substance: PANTOPRAZOLE

REACTIONS (6)
  - Chronic kidney disease [Unknown]
  - Acute kidney injury [Unknown]
  - Hyperparathyroidism secondary [Unknown]
  - Nephrogenic anaemia [Unknown]
  - Renal failure [Unknown]
  - End stage renal disease [Unknown]

NARRATIVE: CASE EVENT DATE: 20111014
